FAERS Safety Report 5340129-7 (Version None)
Quarter: 2007Q2

REPORT INFORMATION
  Report Type: 
  Country: None (occurrence: None)
  Receive Date: 20070525
  Receipt Date: 20070525
  Transmission Date: 20071010
  Serious: Yes (Hospitalization)
  Sender: FDA-Public Use
  Company Number: None

PATIENT
  Age: 27 Year
  Sex: Female
  Weight: 82 kg

DRUGS (7)
  1. VANCOMYCIN HCL [Suspect]
     Indication: SKIN ULCER
     Dosage: 1.25 G Q18 THEN Q24 IV
     Route: 042
  2. CEFTAZIDIME [Concomitant]
  3. TOBRAMYCIN [Concomitant]
  4. PERCOCET [Concomitant]
  5. DEPAKOTE [Concomitant]
  6. COUMADIN [Concomitant]
  7. BENADRYL [Concomitant]

REACTIONS (4)
  - CANDIDURIA [None]
  - DRUG TOXICITY [None]
  - ORAL INTAKE REDUCED [None]
  - RENAL FAILURE ACUTE [None]
